FAERS Safety Report 6719319-4 (Version None)
Quarter: 2010Q2

REPORT INFORMATION
  Report Type: 
  Country: None (occurrence: None)
  Receive Date: 20100511
  Receipt Date: 20100429
  Transmission Date: 20101027
  Serious: Yes (Other)
  Sender: FDA-Public Use
  Company Number: PHHY2010DE28303

PATIENT
  Sex: Male

DRUGS (2)
  1. RASILEZ HCT [Suspect]
     Dosage: 1 DF, QD
  2. ENALAPRIL MALEATE [Concomitant]
     Dosage: 1 DF, QD

REACTIONS (3)
  - BLOOD CREATININE INCREASED [None]
  - BLOOD POTASSIUM INCREASED [None]
  - RENAL FAILURE ACUTE [None]
